FAERS Safety Report 20516998 (Version 2)
Quarter: 2022Q1

REPORT INFORMATION
  Report Type: Spontaneous
  Country: US (occurrence: None)
  Receive Date: 20220225
  Receipt Date: 20220316
  Transmission Date: 20220423
  Serious: No
  Sender: FDA-Public Use
  Company Number: 2022A056812

PATIENT
  Age: 52 Year
  Sex: Female
  Weight: 140.6 kg

DRUGS (2)
  1. FASENRA [Suspect]
     Active Substance: BENRALIZUMAB
     Indication: Asthma
     Dosage: MG/ML
     Route: 058
     Dates: start: 202104
  2. FASENRA [Suspect]
     Active Substance: BENRALIZUMAB
     Indication: Lung disorder
     Dosage: MG/ML
     Route: 058
     Dates: start: 202104

REACTIONS (5)
  - Weight increased [Recovering/Resolving]
  - Chronic obstructive pulmonary disease [Not Recovered/Not Resolved]
  - COVID-19 [Recovered/Resolved]
  - Asthma [Recovered/Resolved]
  - Illness [Unknown]

NARRATIVE: CASE EVENT DATE: 20220101
